FAERS Safety Report 7051930-6 (Version None)
Quarter: 2010Q4

REPORT INFORMATION
  Report Type: 
  Country: None (occurrence: None)
  Receive Date: 20101019
  Receipt Date: 20100927
  Transmission Date: 20110411
  Serious: No
  Sender: FDA-Public Use
  Company Number: GB-MERCK-1010GBR00029

PATIENT
  Sex: Female

DRUGS (2)
  1. ISENTRESS [Suspect]
     Route: 048
     Dates: start: 20100610
  2. LOPINAVIR AND RITONAVIR [Suspect]
     Route: 048

REACTIONS (1)
  - DRUG EXPOSURE DURING PREGNANCY [None]
